FAERS Safety Report 17789187 (Version 1)
Quarter: 2020Q2

REPORT INFORMATION
  Report Type: Spontaneous
  Country: US (occurrence: US)
  Receive Date: 20200514
  Receipt Date: 20200514
  Transmission Date: 20200714
  Serious: No
  Sender: FDA-Public Use
  Company Number: US-PFIZER INC-2020190862

PATIENT
  Age: 58 Year
  Sex: Female
  Weight: 61 kg

DRUGS (21)
  1. DOCETAXEL. [Suspect]
     Active Substance: DOCETAXEL
     Indication: BREAST CANCER FEMALE
     Dosage: UNK, CYCLIC (04 CYCLES, EVERY THREE WEEKS)
     Dates: start: 20150604, end: 20150806
  2. ADVAIR HFA [Concomitant]
     Active Substance: FLUTICASONE PROPIONATE\SALMETEROL XINAFOATE
     Dosage: UNK
     Dates: start: 201203
  3. LEVOTHYROXINE. [Concomitant]
     Active Substance: LEVOTHYROXINE
     Dosage: UNK
     Dates: start: 201203
  4. FLEXERIL [Concomitant]
     Active Substance: CYCLOBENZAPRINE HYDROCHLORIDE
     Dosage: UNK
     Dates: start: 201203
  5. NEOSAR [Concomitant]
     Active Substance: CYCLOPHOSPHAMIDE
     Indication: CHEMOTHERAPY
     Dosage: UNK
  6. GAMMAGARD IMMUNO GLOBULIN [Concomitant]
     Dosage: UNK
     Route: 058
     Dates: start: 201503
  7. HYDROMORPHONE [Concomitant]
     Active Substance: HYDROMORPHONE
     Dosage: UNK
     Dates: start: 2012
  8. PAPAYA ENZYMES [Concomitant]
     Dosage: UNK
     Dates: start: 2012
  9. LORAZEPAM. [Concomitant]
     Active Substance: LORAZEPAM
     Dosage: UNK
     Dates: start: 201203
  10. MONTELUKAST [Concomitant]
     Active Substance: MONTELUKAST SODIUM
     Dosage: UNK
     Dates: start: 201203
  11. FOLIC ACID. [Concomitant]
     Active Substance: FOLIC ACID
     Dosage: UNK
     Dates: start: 2012
  12. TAXOTERE [Suspect]
     Active Substance: DOCETAXEL
     Indication: BREAST CANCER FEMALE
     Dosage: UNK, CYCLIC (04 CYCLES, EVERY THREE WEEKS)
     Dates: start: 20150604, end: 20150806
  13. CITALOPRAM [Concomitant]
     Active Substance: CITALOPRAM HYDROBROMIDE
     Dosage: UNK
     Dates: start: 201203
  14. METHOTREXATE. [Concomitant]
     Active Substance: METHOTREXATE
     Dosage: UNK
     Dates: start: 201503, end: 201702
  15. SENNA [Concomitant]
     Active Substance: SENNA LEAF\SENNOSIDES\SENNOSIDES A AND B
     Dosage: UNK
     Dates: start: 2012
  16. LUTEINE [Concomitant]
     Dosage: UNK
     Dates: start: 2012
  17. OXYMORPHONE [Concomitant]
     Active Substance: OXYMORPHONE
     Dosage: UNK
     Dates: start: 2012, end: 201503
  18. OXYMORPHONE [Concomitant]
     Active Substance: OXYMORPHONE
     Dosage: UNK
     Dates: start: 2015, end: 201702
  19. DOCUSATE [Concomitant]
     Active Substance: DOCUSATE
     Dosage: UNK
     Dates: start: 2012
  20. HYDROMORPHONE [Concomitant]
     Active Substance: HYDROMORPHONE
     Dosage: UNK
     Dates: start: 201603, end: 201702
  21. TRAZODONE [Concomitant]
     Active Substance: TRAZODONE HYDROCHLORIDE
     Dosage: UNK
     Dates: start: 201203

REACTIONS (5)
  - Hair colour changes [Unknown]
  - Hair disorder [Unknown]
  - Hair texture abnormal [Unknown]
  - Madarosis [Not Recovered/Not Resolved]
  - Alopecia [Not Recovered/Not Resolved]

NARRATIVE: CASE EVENT DATE: 201602
